FAERS Safety Report 8074097-4 (Version None)
Quarter: 2011Q4

REPORT INFORMATION
  Report Type: 
  Country: None (occurrence: None)
  Receive Date: 20111221
  Receipt Date: 20100512
  Transmission Date: 20120403
  Serious: Yes (Other)
  Sender: FDA-Public Use
  Company Number: PHHY2010US10530

PATIENT
  Age: 80 Year
  Sex: Male

DRUGS (15)
  1. POTASSIUM CHLORIDE [Concomitant]
  2. FLOMAX [Concomitant]
  3. PREDNISONE TAB [Concomitant]
  4. EXJADE [Suspect]
     Indication: HODGKIN'S DISEASE
     Dosage: 1500 MG, DAILY, ORAL
     Route: 048
     Dates: start: 20090611, end: 20100212
  5. BACTRIM [Concomitant]
  6. OCUVITE (ASCORBIC ACID, RETINOL, TOCOPHEROL) [Concomitant]
  7. ATENOLOL [Concomitant]
  8. VALTREX [Concomitant]
  9. ZANTAC [Concomitant]
  10. DYAZIDE [Concomitant]
  11. CARDURA [Concomitant]
  12. NEXIUM [Concomitant]
  13. AMARYL [Concomitant]
  14. GLUMETZA [Concomitant]
  15. LUTEIN (XANTOFYL) [Concomitant]

REACTIONS (3)
  - GASTRIC ULCER [None]
  - ABDOMINAL DISCOMFORT [None]
  - GASTRITIS [None]
